FAERS Safety Report 8363405-2 (Version None)
Quarter: 2012Q2

REPORT INFORMATION
  Report Type: 
  Country: None (occurrence: None)
  Receive Date: 20120516
  Receipt Date: 20110815
  Transmission Date: 20120825
  Serious: No
  Sender: FDA-Public Use
  Company Number: US-ALEXION-A201101234

PATIENT
  Sex: Female

DRUGS (4)
  1. PREDNISONE [Concomitant]
     Dosage: 2.5 MG, QOD (TAPER)
     Dates: start: 20110301, end: 20110501
  2. PREDNISONE [Concomitant]
     Dosage: UNK
     Dates: start: 19960101
  3. SOLIRIS [Suspect]
     Indication: PAROXYSMAL NOCTURNAL HAEMOGLOBINURIA
     Dosage: 600 MG, QW
     Route: 042
     Dates: start: 20110127, end: 20110217
  4. SOLIRIS [Suspect]
     Dosage: 900 MG, Q2W
     Route: 042
     Dates: start: 20110224

REACTIONS (3)
  - OEDEMA PERIPHERAL [None]
  - PAIN IN EXTREMITY [None]
  - ANTINUCLEAR ANTIBODY INCREASED [None]
